FAERS Safety Report 9916117 (Version 1)
Quarter: 2014Q1

REPORT INFORMATION
  Report Type: Spontaneous
  Country: US (occurrence: US)
  Receive Date: 20140221
  Receipt Date: 20140221
  Transmission Date: 20141002
  Serious: Yes (Hospitalization)
  Sender: FDA-Public Use
  Company Number: US-BRISTOL-MYERS SQUIBB COMPANY-20206926

PATIENT
  Sex: 0

DRUGS (1)
  1. ELIQUIS [Suspect]
     Dosage: TABLET?5MG

REACTIONS (1)
  - Abnormal behaviour [Unknown]
